FAERS Safety Report 7978912-1 (Version None)
Quarter: 2011Q4

REPORT INFORMATION
  Report Type: 
  Country: None (occurrence: None)
  Receive Date: 20111205
  Receipt Date: 20111129
  Transmission Date: 20120403
  Serious: Yes (Hospitalization, Other)
  Sender: FDA-Public Use
  Company Number: 2010SP004262

PATIENT
  Age: 22 Year
  Sex: Female
  Weight: 99.7913 kg

DRUGS (1)
  1. NUVARING [Suspect]
     Indication: CONTRACEPTION
     Dosage: VAG
     Route: 067
     Dates: start: 20060101, end: 20080101

REACTIONS (29)
  - PULMONARY EMBOLISM [None]
  - DYSPNOEA [None]
  - HEAD INJURY [None]
  - PHOTOPHOBIA [None]
  - PANIC ATTACK [None]
  - MIGRAINE [None]
  - VAGINITIS BACTERIAL [None]
  - CONDITION AGGRAVATED [None]
  - CHEST PAIN [None]
  - IMPAIRED WORK ABILITY [None]
  - FALL [None]
  - VAGINAL HAEMORRHAGE [None]
  - THROMBOSIS [None]
  - INFLUENZA [None]
  - PAIN IN EXTREMITY [None]
  - DIARRHOEA [None]
  - PREGNANCY [None]
  - BACK PAIN [None]
  - ABDOMINAL PAIN [None]
  - TENSION HEADACHE [None]
  - COSTOCHONDRITIS [None]
  - RECTAL HAEMORRHAGE [None]
  - VOMITING [None]
  - WEIGHT INCREASED [None]
  - HYPERTENSION [None]
  - ABORTION SPONTANEOUS [None]
  - DEPRESSION [None]
  - DIZZINESS [None]
  - NAUSEA [None]
